FAERS Safety Report 4869718-0 (Version None)
Quarter: 2005Q4

REPORT INFORMATION
  Report Type: 
  Country: None (occurrence: None)
  Receive Date: 20051223
  Receipt Date: 20051215
  Transmission Date: 20060501
  Serious: Yes (Death)
  Sender: FDA-Public Use
  Company Number: 200514350GDS

PATIENT
  Age: 67 Year
  Sex: Male

DRUGS (11)
  1. NIMODIPINE [Suspect]
     Indication: PROPHYLAXIS
     Dosage: 10 MG, TOTAL DAILY, INTRAVENOUS
     Route: 042
     Dates: start: 20051211, end: 20051212
  2. NIMODIPINE [Suspect]
     Indication: VASOSPASM
     Dosage: 10 MG, TOTAL DAILY, INTRAVENOUS
     Route: 042
     Dates: start: 20051211, end: 20051212
  3. NIMODIPINE [Concomitant]
  4. CEREBROLYSIN [Concomitant]
  5. SODIUM CYTIDINE TRIPHOSPHATE [Concomitant]
  6. CEFTAZIDIME [Concomitant]
  7. ISOSORBIDE DINITRATE [Concomitant]
  8. AZOSEMIDE [Concomitant]
  9. METOPROLOL [Concomitant]
  10. CAPTOPRIL [Concomitant]
  11. SIMVASTATIN [Concomitant]

REACTIONS (8)
  - ASPHYXIA [None]
  - DISEASE RECURRENCE [None]
  - DYSPNOEA [None]
  - INFECTION [None]
  - PYREXIA [None]
  - SUBARACHNOID HAEMORRHAGE [None]
  - TACHYCARDIA [None]
  - WRONG TECHNIQUE IN DRUG USAGE PROCESS [None]
